FAERS Safety Report 13595343 (Version 4)
Quarter: 2017Q2

REPORT INFORMATION
  Report Type: Spontaneous
  Country: IT (occurrence: IT)
  Receive Date: 20170531
  Receipt Date: 20170620
  Transmission Date: 20170830
  Serious: Yes (Hospitalization)
  Sender: FDA-Public Use
  Company Number: IT-ACCORD-051848

PATIENT
  Age: 75 Year
  Sex: Male
  Weight: 75 kg

DRUGS (11)
  1. RANEXA [Concomitant]
     Active Substance: RANOLAZINE
     Indication: ATRIAL FIBRILLATION
     Dosage: STRENGTH: 375 MG
     Route: 048
  2. RAMIPRIL. [Suspect]
     Active Substance: RAMIPRIL
     Indication: HYPERTENSION
     Route: 048
  3. XARELTO [Interacting]
     Active Substance: RIVAROXABAN
     Indication: ATRIAL FIBRILLATION
     Dosage: STRENGTH: 20 MG
     Route: 048
     Dates: start: 20150424, end: 20170421
  4. LANTUS [Concomitant]
     Active Substance: INSULIN GLARGINE
     Indication: DIABETES MELLITUS
     Dosage: STRENGTH: 100 U/ML
     Route: 058
  5. KANRENOL [Interacting]
     Active Substance: CANRENOATE POTASSIUM
     Indication: DIURETIC THERAPY
     Dosage: STRENGTH: 25 MG
     Route: 048
  6. VENITRIN [Concomitant]
     Active Substance: NITROGLYCERIN
     Indication: ANGINA PECTORIS
     Dosage: 10 MG/24 HOURS TROUTS
     Route: 062
  7. LOBIVON [Concomitant]
     Active Substance: NEBIVOLOL HYDROCHLORIDE
     Indication: HYPERTENSION
     Dosage: STRENGTH: 5 MG
     Route: 048
  8. LASIX [Concomitant]
     Active Substance: FUROSEMIDE
     Indication: DIURETIC THERAPY
     Dosage: STRENGTH: 25 MG
     Route: 048
  9. HUMALOG PEN MIX [Concomitant]
     Indication: DIABETES MELLITUS
     Dosage: STRENGTH: 100 U/ML
     Route: 058
  10. TAMSULOSIN TEVA [Concomitant]
     Active Substance: TAMSULOSIN
     Indication: BENIGN PROSTATIC HYPERPLASIA
     Dosage: STRENGTH: 0.4 MG
     Route: 048
  11. TORVAST [Concomitant]
     Active Substance: ATORVASTATIN
     Indication: HYPERCHOLESTEROLAEMIA
     Dosage: STRENGTH: 40 MG
     Route: 048

REACTIONS (3)
  - Pyrexia [Recovered/Resolved]
  - Acute kidney injury [Recovered/Resolved]
  - Drug interaction [Unknown]

NARRATIVE: CASE EVENT DATE: 20170128
